FAERS Safety Report 21305542 (Version 2)
Quarter: 2022Q3

REPORT INFORMATION
  Report Type: Other
  Country: JP (occurrence: JP)
  Receive Date: 20220908
  Receipt Date: 20220913
  Transmission Date: 20221026
  Serious: Yes (Death, Other)
  Sender: FDA-Public Use
  Company Number: JP-ROCHE-3158648

PATIENT
  Age: 68 Year
  Sex: Male

DRUGS (2)
  1. MYCOPHENOLATE MOFETIL [Suspect]
     Active Substance: MYCOPHENOLATE MOFETIL
     Indication: Prophylaxis against graft versus host disease
     Route: 065
  2. TACROLIMUS [Suspect]
     Active Substance: TACROLIMUS
     Indication: Prophylaxis against graft versus host disease
     Dosage: CONTINUOUS INFUSION, AIMING FOR 15-17.5 NG/ML
     Route: 042

REACTIONS (3)
  - Acute myeloid leukaemia [Fatal]
  - Epstein-Barr virus associated lymphoproliferative disorder [Unknown]
  - Extranodal marginal zone B-cell lymphoma (MALT type) [Unknown]
